FAERS Safety Report 11927910 (Version 1)
Quarter: 2016Q1

REPORT INFORMATION
  Report Type: Spontaneous
  Country: SE (occurrence: SE)
  Receive Date: 20160119
  Receipt Date: 20160119
  Transmission Date: 20160526
  Serious: Yes (Other)
  Sender: FDA-Public Use
  Company Number: SE-ASTRAZENECA-2016SE03619

PATIENT
  Age: 64 Year
  Sex: Male

DRUGS (4)
  1. SEROQUEL XR [Suspect]
     Active Substance: QUETIAPINE FUMARATE
     Indication: MAJOR DEPRESSION
     Dosage: AS NEEDED
     Route: 048
  2. SEROQUEL XR [Suspect]
     Active Substance: QUETIAPINE FUMARATE
     Indication: BIPOLAR I DISORDER
     Dosage: AS NEEDED
     Route: 048
  3. SEROQUEL XR [Suspect]
     Active Substance: QUETIAPINE FUMARATE
     Indication: BIPOLAR I DISORDER
     Route: 048
  4. SEROQUEL XR [Suspect]
     Active Substance: QUETIAPINE FUMARATE
     Indication: MAJOR DEPRESSION
     Route: 048

REACTIONS (15)
  - Joint swelling [Unknown]
  - Constipation [Unknown]
  - Loss of consciousness [Unknown]
  - Rhinorrhoea [Unknown]
  - Dyspnoea [Unknown]
  - Muscle spasms [Unknown]
  - Intentional product misuse [Unknown]
  - Epilepsy [Unknown]
  - Oropharyngeal pain [Unknown]
  - Delusion [Unknown]
  - Nightmare [Unknown]
  - Movement disorder [Unknown]
  - Muscle disorder [Unknown]
  - Fatigue [Unknown]
  - Pyrexia [Unknown]
